FAERS Safety Report 7259955-2 (Version None)
Quarter: 2011Q1

REPORT INFORMATION
  Report Type: 
  Country: None (occurrence: None)
  Receive Date: 20110130
  Receipt Date: 20101006
  Transmission Date: 20110831
  Serious: No
  Sender: FDA-Public Use
  Company Number: US-ABBOTT-10P-163-0676401-00

PATIENT
  Age: 58 Year
  Sex: Female

DRUGS (5)
  1. STOMACH [Concomitant]
     Indication: GASTRIC DISORDER
     Dosage: MEDICATION
  2. ZOVIRAX [Concomitant]
     Indication: PRODUCT USED FOR UNKNOWN INDICATION
  3. HUMIRA [Suspect]
     Indication: CROHN'S DISEASE
     Dates: start: 20100601
  4. HORMONES NOS [Concomitant]
     Indication: PRODUCT USED FOR UNKNOWN INDICATION
  5. STEROIDS [Concomitant]
     Indication: PRODUCT USED FOR UNKNOWN INDICATION

REACTIONS (1)
  - OEDEMA PERIPHERAL [None]
